FAERS Safety Report 6308826-4 (Version None)
Quarter: 2009Q3

REPORT INFORMATION
  Report Type: 
  Country: None (occurrence: None)
  Receive Date: 20090813
  Receipt Date: 20080911
  Transmission Date: 20100115
  Serious: No
  Sender: FDA-Public Use
  Company Number: US-ALLERGAN-0811365US

PATIENT
  Age: 68 Year
  Sex: Female

DRUGS (4)
  1. COMBIGAN [Suspect]
     Indication: GLAUCOMA
     Dosage: ON AND OFF
     Route: 047
     Dates: start: 20080701, end: 20080904
  2. ECONOPRED [Suspect]
     Indication: DRUG USE FOR UNKNOWN INDICATION
     Dosage: UNK, UNKNOWN
     Route: 047
  3. NASACORT [Concomitant]
  4. KLONOPIN [Concomitant]
     Dosage: 2 -3 TIMES A WEEK

REACTIONS (1)
  - DIZZINESS [None]
